FAERS Safety Report 14768622 (Version 2)
Quarter: 2019Q2

REPORT INFORMATION
  Report Type: Spontaneous
  Country: US (occurrence: US)
  Receive Date: 20180417
  Receipt Date: 20190425
  Transmission Date: 20190711
  Serious: No
  Sender: FDA-Public Use
  Company Number: US-TEVA-815419USA

PATIENT

DRUGS (1)
  1. ATENOLOL. [Suspect]
     Active Substance: ATENOLOL

REACTIONS (4)
  - Heart rate increased [Unknown]
  - Tachycardia [Unknown]
  - Drug ineffective [Unknown]
  - Product substitution issue [Unknown]
